FAERS Safety Report 9353617 (Version 1)
Quarter: 2013Q2

REPORT INFORMATION
  Report Type: Spontaneous
  Country: US (occurrence: US)
  Receive Date: 20130618
  Receipt Date: 20130618
  Transmission Date: 20140414
  Serious: No
  Sender: FDA-Public Use
  Company Number: US-009507513-1306USA005602

PATIENT
  Sex: Female

DRUGS (3)
  1. SAPHRIS [Suspect]
     Indication: BIPOLAR I DISORDER
     Dosage: 10 MG, ONCE IN THE EVENING
     Route: 060
     Dates: start: 201212, end: 201301
  2. SAPHRIS [Suspect]
     Dosage: 5 MG, FREQUENCY NOT PROVIDED
     Route: 060
     Dates: start: 201212, end: 201212
  3. CYMBALTA [Concomitant]
     Dosage: 30 MG, BID

REACTIONS (1)
  - Muscular weakness [Recovered/Resolved]
